FAERS Safety Report 7032488-4 (Version None)
Quarter: 2010Q4

REPORT INFORMATION
  Report Type: 
  Country: None (occurrence: None)
  Receive Date: 20101004
  Receipt Date: 20100925
  Transmission Date: 20110411
  Serious: Yes (Other)
  Sender: FDA-Public Use
  Company Number: 019475

PATIENT
  Age: 4 Year
  Sex: Male

DRUGS (1)
  1. XYZAL [Suspect]
     Dosage: (5 MG QD ORAL)
     Route: 048
     Dates: start: 20100925

REACTIONS (2)
  - ACCIDENTAL DRUG INTAKE BY CHILD [None]
  - WRONG DRUG ADMINISTERED [None]
